FAERS Safety Report 10612826 (Version 1)
Quarter: 2014Q4

REPORT INFORMATION
  Report Type: Spontaneous
  Country: GB (occurrence: GB)
  Receive Date: 20141127
  Receipt Date: 20141127
  Transmission Date: 20150529
  Serious: Yes (Death, Hospitalization)
  Sender: FDA-Public Use
  Company Number: GB-BRISTOL-MYERS SQUIBB COMPANY-21614680

PATIENT
  Age: 88 Year
  Sex: Female

DRUGS (11)
  1. BUMETANIDE. [Concomitant]
     Active Substance: BUMETANIDE
     Dosage: INCREASED WHILE IN HOSPITAL WHEN APIXABAN WAS STARTED
  2. CAPSAICIN. [Concomitant]
     Active Substance: CAPSAICIN
  3. DIGOXIN. [Concomitant]
     Active Substance: DIGOXIN
     Dosage: STARTED WHILST IN HOSPITAL WHEN APIXABAN WAS STARTED
     Dates: start: 201405
  4. ICAPS [Concomitant]
     Active Substance: MINERALS\VITAMINS
  5. IRBESARTAN. [Concomitant]
     Active Substance: IRBESARTAN
     Dates: end: 201405
  6. SPIRONOLACTONE. [Concomitant]
     Active Substance: SPIRONOLACTONE
     Dosage: STARTED WHILST IN HOSPITAL WHEN APIXABAN WAS STARTED
     Dates: start: 201405
  7. BISOPROLOL [Concomitant]
     Active Substance: BISOPROLOL
  8. PARACETAMOL [Concomitant]
     Active Substance: ACETAMINOPHEN
  9. AMLODIPINE [Concomitant]
     Active Substance: AMLODIPINE BESYLATE
     Dates: end: 201405
  10. WARFARIN [Concomitant]
     Active Substance: WARFARIN
     Indication: ATRIAL FIBRILLATION
     Dates: end: 201405
  11. ELIQUIS [Suspect]
     Active Substance: APIXABAN
     Indication: CEREBROVASCULAR ACCIDENT PROPHYLAXIS
     Route: 048
     Dates: start: 201405, end: 201411

REACTIONS (5)
  - Sepsis [Fatal]
  - Confusional state [Not Recovered/Not Resolved]
  - Abdominal infection [Fatal]
  - Abdominal pain [Not Recovered/Not Resolved]
  - Back pain [Not Recovered/Not Resolved]

NARRATIVE: CASE EVENT DATE: 20141102
